FAERS Safety Report 8132568-6 (Version None)
Quarter: 2012Q1

REPORT INFORMATION
  Report Type: 
  Country: None (occurrence: None)
  Receive Date: 20120213
  Receipt Date: 20120207
  Transmission Date: 20120608
  Serious: No
  Sender: FDA-Public Use
  Company Number: US-PFIZER INC-2012034721

PATIENT
  Sex: Female
  Weight: 52.2 kg

DRUGS (3)
  1. YAZ [Concomitant]
     Indication: CONTRACEPTION
     Dosage: UNK
     Dates: start: 20100101
  2. LEVOXYL [Suspect]
     Indication: OFF LABEL USE
     Dosage: 0.125 MG, 1X/DAY
     Dates: start: 20010101
  3. LEVOXYL [Suspect]
     Indication: HYPERTHYROIDISM

REACTIONS (1)
  - DRUG EFFECT DECREASED [None]
